FAERS Safety Report 17328694 (Version 1)
Quarter: 2020Q1

REPORT INFORMATION
  Report Type: Spontaneous
  Country: FR (occurrence: FR)
  Receive Date: 20200127
  Receipt Date: 20200127
  Transmission Date: 20200409
  Serious: Yes (Other)
  Sender: FDA-Public Use
  Company Number: FR-MYLANLABS-2020M1008098

PATIENT
  Age: 15 Year
  Sex: Female
  Weight: 95 kg

DRUGS (4)
  1. IBUPROFENE ARROW [Suspect]
     Active Substance: IBUPROFEN
     Indication: PAIN
     Dosage: 800 MILLIGRAM, QD
     Route: 048
     Dates: start: 20191005, end: 20191007
  2. KETOPROFENE                        /00321701/ [Suspect]
     Active Substance: KETOPROFEN
     Indication: PAIN
     Dosage: 200 MILLIGRAM, QD
     Route: 042
     Dates: start: 20191003, end: 20191005
  3. DOLIPRANE [Suspect]
     Active Substance: ACETAMINOPHEN
     Indication: PAIN
     Dosage: 2000 MILLIGRAM, QD
     Route: 048
     Dates: start: 20191003
  4. OROZAMUDOL 50 MG, COMPRIM? ORODISPERSIBLE [Suspect]
     Active Substance: TRAMADOL
     Indication: PAIN
     Dosage: 50 MILLIGRAM, PRN
     Route: 048
     Dates: start: 20191003, end: 20191009

REACTIONS (2)
  - Hepatocellular injury [Recovering/Resolving]
  - Cholestasis [Recovering/Resolving]

NARRATIVE: CASE EVENT DATE: 20191007
